FAERS Safety Report 8483552-4 (Version None)
Quarter: 2012Q3

REPORT INFORMATION
  Report Type: 
  Country: None (occurrence: None)
  Receive Date: 20120702
  Receipt Date: 20120507
  Transmission Date: 20120928
  Serious: Yes (Other)
  Sender: FDA-Public Use
  Company Number: NO-MERCK-1111NOR00008

PATIENT
  Age: 30 Year
  Sex: Female

DRUGS (5)
  1. SINGULAIR [Suspect]
     Indication: ASTHMA
     Route: 048
     Dates: start: 20100101, end: 20110101
  2. SINGULAIR [Suspect]
     Route: 048
     Dates: start: 20110101
  3. BUDESONIDE AND FORMOTEROL FUMARATE [Concomitant]
     Indication: ASTHMA
     Route: 055
  4. METOCLOPRAMIDE HYDROCHLORIDE [Concomitant]
     Indication: VOMITING IN PREGNANCY
     Route: 048
  5. LABETALOL HYDROCHLORIDE [Concomitant]
     Indication: HYPERTENSION
     Route: 048
     Dates: start: 20110601, end: 20120101

REACTIONS (5)
  - RESTLESS LEGS SYNDROME [None]
  - NAUSEA [None]
  - HYPERTENSION [None]
  - PRE-ECLAMPSIA [None]
  - MATERNAL EXPOSURE DURING PREGNANCY [None]
